FAERS Safety Report 5648264-0 (Version None)
Quarter: 2008Q1

REPORT INFORMATION
  Report Type: 
  Country: None (occurrence: None)
  Receive Date: 20080229
  Receipt Date: 20080215
  Transmission Date: 20080703
  Serious: Yes (Other)
  Sender: FDA-Public Use
  Company Number: TPG2008A00107

PATIENT
  Age: 72 Year
  Sex: Male

DRUGS (8)
  1. ACTOS [Suspect]
     Indication: DIABETES MELLITUS
     Dosage: 45 MG (45 MG, 1 IN 1 D)
     Route: 048
     Dates: start: 20080111, end: 20080206
  2. INSULIN (INSULIN) [Concomitant]
  3. ACETYLSALICYLIC ACID SRT [Concomitant]
  4. AMLODIPINE [Concomitant]
  5. SIMVASTATIN [Concomitant]
  6. MOLSI-PUREN (MOLSIDOMINE) [Concomitant]
  7. RAMIPRIL [Concomitant]
  8. RANITIDINE [Concomitant]

REACTIONS (1)
  - ANGINA PECTORIS [None]
